FAERS Safety Report 6883365-0 (Version None)
Quarter: 2010Q3

REPORT INFORMATION
  Report Type: 
  Country: None (occurrence: None)
  Receive Date: 20100727
  Receipt Date: 20080630
  Transmission Date: 20110219
  Serious: Yes (Other)
  Sender: FDA-Public Use
  Company Number: US-PFIZER INC-2006130012

PATIENT
  Sex: Female
  Weight: 108.4 kg

DRUGS (1)
  1. CELEBREX [Suspect]
     Indication: ARTHRALGIA
     Dosage: 100 AND 200 MG
     Route: 048
     Dates: start: 19970901

REACTIONS (1)
  - CEREBROVASCULAR ACCIDENT [None]
